FAERS Safety Report 13671908 (Version 1)
Quarter: 2017Q2

REPORT INFORMATION
  Report Type: Spontaneous
  Country: JP (occurrence: JP)
  Receive Date: 20170620
  Receipt Date: 20170620
  Transmission Date: 20170830
  Serious: Yes (Other)
  Sender: FDA-Public Use
  Company Number: PHHY2017JP086780

PATIENT
  Age: 64 Year
  Sex: Male

DRUGS (3)
  1. NICARDIPINE [Suspect]
     Active Substance: NICARDIPINE
     Indication: IDIOPATHIC INTRACRANIAL HYPERTENSION
     Dosage: 2 MG, QH
     Route: 042
  2. AMLODIPINE [Suspect]
     Active Substance: AMLODIPINE BESYLATE
     Indication: IDIOPATHIC INTRACRANIAL HYPERTENSION
     Dosage: 10 MG, QD
     Route: 048
  3. OLMESARTAN [Suspect]
     Active Substance: OLMESARTAN
     Indication: IDIOPATHIC INTRACRANIAL HYPERTENSION
     Dosage: 20 MG, QD
     Route: 065

REACTIONS (1)
  - Acute kidney injury [Recovered/Resolved]
